FAERS Safety Report 24994694 (Version 1)
Quarter: 2025Q1

REPORT INFORMATION
  Report Type: Spontaneous
  Country: US (occurrence: None)
  Receive Date: 20250220
  Receipt Date: 20250220
  Transmission Date: 20250409
  Serious: Yes (Death)
  Sender: FDA-CTU
  Company Number: None

PATIENT
  Sex: Male

DRUGS (11)
  1. ORENCIA [Suspect]
     Active Substance: ABATACEPT
     Indication: Rheumatoid arthritis
     Dosage: FREQUENCY : WEEKLY;?
     Route: 058
     Dates: start: 20171018, end: 20250206
  2. ALPRAZOLAM TAB1MG [Concomitant]
  3. ARIPIPRAZOLE TAB 2MG [Concomitant]
  4. ATENOLOL TAB 25MG [Concomitant]
  5. ATORVASTATIN [Concomitant]
     Active Substance: ATORVASTATIN
  6. BENZOYL PER LIQ 5% WASH [Concomitant]
  7. DESIPRAMINE TAB 150MG [Concomitant]
  8. DULOXETINE CAP 60MG [Concomitant]
  9. EYSUVIS ORO 0.25% [Concomitant]
  10. GABAPENTIN TAB 600MG [Concomitant]
  11. GABAPENTIN TAB 800MG [Concomitant]

REACTIONS (1)
  - Death [None]
